FAERS Safety Report 21517163 (Version 1)
Quarter: 2022Q4

REPORT INFORMATION
  Report Type: Report from Study
  Country: IE (occurrence: IE)
  Receive Date: 20221028
  Receipt Date: 20221028
  Transmission Date: 20230112
  Serious: Yes (Hospitalization)
  Sender: FDA-Public Use
  Company Number: IE-AstraZeneca-2022A356952

PATIENT
  Sex: Male

DRUGS (3)
  1. SYNAGIS [Suspect]
     Active Substance: PALIVIZUMAB
     Indication: Product used for unknown indication
     Dosage: ONE DOSE UNKNOWN
     Dates: start: 20220201
  2. SYNAGIS [Suspect]
     Active Substance: PALIVIZUMAB
     Dosage: DOSE: 15 MG/KG, FREQUENCY: AFTER 28 DAYS UNKNOWN
     Dates: start: 20221020
  3. SYNAGIS [Suspect]
     Active Substance: PALIVIZUMAB
     Dosage: 1.0ML UNKNOWN
     Dates: start: 20221020

REACTIONS (3)
  - Respiratory syncytial virus infection [Unknown]
  - Nasal congestion [Unknown]
  - Off label use [Unknown]
